FAERS Safety Report 7116245-6 (Version None)
Quarter: 2010Q4

REPORT INFORMATION
  Report Type: 
  Country: None (occurrence: None)
  Receive Date: 20101122
  Receipt Date: 20101118
  Transmission Date: 20110411
  Serious: Yes (Other)
  Sender: FDA-Public Use
  Company Number: BR-ABBOTT-10P-020-0686524-00

PATIENT
  Sex: Female
  Weight: 72 kg

DRUGS (1)
  1. HUMIRA [Suspect]
     Indication: CROHN'S DISEASE
     Dates: start: 20100601

REACTIONS (8)
  - ABDOMINAL PAIN [None]
  - BEDRIDDEN [None]
  - DRY SKIN [None]
  - FISTULA [None]
  - MALAISE [None]
  - PAIN [None]
  - PYREXIA [None]
  - SKIN EXFOLIATION [None]
